FAERS Safety Report 9391218 (Version 2)
Quarter: 2013Q3

REPORT INFORMATION
  Report Type: Report from Study
  Country: US (occurrence: US)
  Receive Date: 20130709
  Receipt Date: 20130820
  Transmission Date: 20140515
  Serious: Yes (Hospitalization, Other)
  Sender: FDA-Public Use
  Company Number: US-ABBOTT-13P-163-1115692-00

PATIENT
  Sex: Male
  Weight: 72.64 kg

DRUGS (5)
  1. HUMIRA [Suspect]
     Indication: CROHN^S DISEASE
     Dates: start: 2009, end: 2011
  2. 6 MP [Concomitant]
     Indication: CROHN^S DISEASE
  3. AZATHIOPRINE [Concomitant]
     Indication: CROHN^S DISEASE
  4. CIMZIA [Concomitant]
     Indication: PRODUCT USED FOR UNKNOWN INDICATION
  5. STELARA [Concomitant]
     Indication: PRODUCT USED FOR UNKNOWN INDICATION

REACTIONS (4)
  - Fistula [Unknown]
  - Crohn^s disease [Unknown]
  - Drug ineffective [Unknown]
  - Pyoderma gangrenosum [Unknown]
